FAERS Safety Report 15615175 (Version 1)
Quarter: 2018Q4

REPORT INFORMATION
  Report Type: Spontaneous
  Country: BR (occurrence: BR)
  Receive Date: 20181114
  Receipt Date: 20181114
  Transmission Date: 20190205
  Serious: Yes (Hospitalization)
  Sender: FDA-Public Use
  Company Number: BR-AMGEN-BRASP2018158368

PATIENT

DRUGS (4)
  1. NEULASTIM [Suspect]
     Active Substance: PEGFILGRASTIM
     Indication: PROPHYLAXIS
     Dosage: 6 MG, UNK
     Route: 058
     Dates: start: 20181012
  2. PERTUZUMAB. [Concomitant]
     Active Substance: PERTUZUMAB
     Indication: METASTATIC NEOPLASM
     Dosage: UNK
     Dates: start: 20181011
  3. TRASTUZUMAB. [Concomitant]
     Active Substance: TRASTUZUMAB
     Indication: METASTATIC NEOPLASM
     Dosage: UNK
     Dates: start: 20181011
  4. DOCETAXEL. [Concomitant]
     Active Substance: DOCETAXEL
     Indication: METASTATIC NEOPLASM
     Dosage: UNK
     Dates: start: 20181011

REACTIONS (7)
  - Pyrexia [Unknown]
  - Nausea [Unknown]
  - Gastrointestinal disorder [Unknown]
  - Therapy non-responder [Unknown]
  - Abdominal pain [Unknown]
  - Diarrhoea [Unknown]
  - Decreased appetite [Unknown]

NARRATIVE: CASE EVENT DATE: 20181016
